FAERS Safety Report 6841632-0 (Version None)
Quarter: 2010Q3

REPORT INFORMATION
  Report Type: 
  Country: None (occurrence: None)
  Receive Date: 20100714
  Receipt Date: 20070914
  Transmission Date: 20110219
  Serious: No
  Sender: FDA-Public Use
  Company Number: US-PFIZER INC-2007058487

PATIENT
  Sex: Female
  Weight: 97.5 kg

DRUGS (6)
  1. CHANTIX [Suspect]
     Indication: SMOKING CESSATION THERAPY
     Route: 048
     Dates: start: 20070418, end: 20070509
  2. ADDERALL XR 10 [Interacting]
     Indication: ATTENTION DEFICIT/HYPERACTIVITY DISORDER
     Route: 048
     Dates: start: 20070302, end: 20070424
  3. VENLAFAXINE HYDROCHLORIDE [Concomitant]
     Indication: ANXIETY
     Route: 048
     Dates: start: 20070409
  4. NAPROSYN [Concomitant]
     Indication: PAIN
     Route: 048
     Dates: start: 20070411
  5. FLEXERIL [Concomitant]
     Indication: MUSCLE SPASMS
     Route: 048
     Dates: start: 20070409
  6. PROPACET 100 [Concomitant]
     Indication: PAIN
     Dosage: EVERY 4 HOURS AS NEEDED
     Route: 048
     Dates: start: 20070409, end: 20070424

REACTIONS (2)
  - DRUG EFFECT DECREASED [None]
  - DRUG INTERACTION [None]
